FAERS Safety Report 25141750 (Version 1)
Quarter: 2025Q1

REPORT INFORMATION
  Report Type: Spontaneous
  Country: US (occurrence: US)
  Receive Date: 20250331
  Receipt Date: 20250331
  Transmission Date: 20250409
  Serious: No
  Sender: EVOLUS, INC.
  Company Number: US-Evolus, Inc.-2024EV000089

PATIENT

DRUGS (3)
  1. JEUVEAU [Suspect]
     Active Substance: PRABOTULINUMTOXINA-XVFS
     Indication: Product used for unknown indication
     Dates: start: 20240221, end: 20240221
  2. JEUVEAU [Suspect]
     Active Substance: PRABOTULINUMTOXINA-XVFS
     Dates: start: 202402, end: 202402
  3. JEUVEAU [Suspect]
     Active Substance: PRABOTULINUMTOXINA-XVFS

REACTIONS (3)
  - Injection site swelling [Recovered/Resolved]
  - Injection site pain [Recovered/Resolved]
  - Injection site erythema [Recovered/Resolved]

NARRATIVE: CASE EVENT DATE: 20240201
